FAERS Safety Report 24108453 (Version 1)
Quarter: 2024Q3

REPORT INFORMATION
  Report Type: Report from Study
  Country: US (occurrence: None)
  Receive Date: 20240718
  Receipt Date: 20240718
  Transmission Date: 20241017
  Serious: Yes (Other)
  Sender: ASTRAZENECA
  Company Number: 2020SE67652

PATIENT
  Sex: Male

DRUGS (13)
  1. TAGRISSO [Suspect]
     Active Substance: OSIMERTINIB
     Indication: Lung neoplasm malignant
     Route: 048
  2. REMERON [Concomitant]
     Active Substance: MIRTAZAPINE
  3. CLARINEX [Concomitant]
     Active Substance: DESLORATADINE
  4. NASONEX [Concomitant]
     Active Substance: MOMETASONE FUROATE
  5. AVODART [Concomitant]
     Active Substance: DUTASTERIDE
  6. PREDNISONE [Concomitant]
     Active Substance: PREDNISONE
  7. MELATONIN + L-THEANINE [Concomitant]
  8. PROBIOTIC + ACIDOPHILUS [Concomitant]
  9. TYLENOL [Concomitant]
     Active Substance: ACETAMINOPHEN
  10. UROXATRAL [Concomitant]
     Active Substance: ALFUZOSIN HYDROCHLORIDE
  11. LUNESTA [Concomitant]
     Active Substance: ESZOPICLONE
  12. SIMVASTATIN [Concomitant]
     Active Substance: SIMVASTATIN
  13. MYSOLINE [Concomitant]
     Active Substance: PRIMIDONE

REACTIONS (9)
  - Fall [Unknown]
  - Decreased appetite [Unknown]
  - Eructation [Unknown]
  - Defaecation disorder [Unknown]
  - Dizziness [Unknown]
  - Nausea [Unknown]
  - Insomnia [Unknown]
  - Vomiting [Unknown]
  - Nocturia [Unknown]
